FAERS Safety Report 6040091-8 (Version None)
Quarter: 2009Q1

REPORT INFORMATION
  Report Type: 
  Country: None (occurrence: None)
  Receive Date: 20090116
  Receipt Date: 20071207
  Transmission Date: 20090719
  Serious: No
  Sender: FDA-Public Use
  Company Number: US-BRISTOL-MYERS SQUIBB COMPANY-14008247

PATIENT
  Age: 5 Decade
  Sex: Female

DRUGS (5)
  1. ABILIFY [Suspect]
     Route: 048
     Dates: start: 20070101
  2. DEPAKOTE [Concomitant]
  3. CLONIDINE [Concomitant]
  4. COGENTIN [Concomitant]
  5. TRILAFON [Concomitant]

REACTIONS (1)
  - ALOPECIA [None]
